FAERS Safety Report 26028337 (Version 2)
Quarter: 2025Q4

REPORT INFORMATION
  Report Type: Spontaneous
  Country: EU (occurrence: EU)
  Receive Date: 20251111
  Receipt Date: 20251219
  Transmission Date: 20260117
  Serious: Yes (Death, Life-Threatening, Other)
  Sender: BAUSCH AND LOMB
  Company Number: None

PATIENT
  Sex: Female

DRUGS (8)
  1. AZATHIOPRINE [Suspect]
     Active Substance: AZATHIOPRINE
     Indication: Systemic lupus erythematosus
     Route: 065
  2. AZATHIOPRINE [Suspect]
     Active Substance: AZATHIOPRINE
     Route: 065
     Dates: start: 2002, end: 2003
  3. MYCOPHENOLATE MOFETIL [Suspect]
     Active Substance: MYCOPHENOLATE MOFETIL
     Indication: Systemic lupus erythematosus
     Route: 065
     Dates: start: 2003
  4. CYCLOPHOSPHAMIDE [Suspect]
     Active Substance: CYCLOPHOSPHAMIDE
     Indication: Systemic lupus erythematosus
     Dosage: PULSE CYCLOPHOSPHAMIDE TREATMENT WAS RESTARTED
     Route: 065
     Dates: start: 2003
  5. CYCLOPHOSPHAMIDE [Suspect]
     Active Substance: CYCLOPHOSPHAMIDE
     Indication: Progressive multifocal leukoencephalopathy
     Dosage: PULSE 9 IN HER SECOND COURSE OF 4,500 MG, OR 9,100 MG CYCLOPHOSPHAMIDE IN TOTAL
     Route: 065
     Dates: start: 2004
  6. CYCLOPHOSPHAMIDE [Suspect]
     Active Substance: CYCLOPHOSPHAMIDE
     Dosage: TWO MORE CYCLOPHOSPHAMIDE PULSES
     Route: 065
     Dates: start: 2004
  7. CYCLOPHOSPHAMIDE [Suspect]
     Active Substance: CYCLOPHOSPHAMIDE
     Dosage: EIGHT PULSES WITH A TOTAL DOSE OF 4,600 MG PULSES
     Route: 065
     Dates: start: 2002
  8. METHOTREXATE [Suspect]
     Active Substance: METHOTREXATE
     Indication: Systemic lupus erythematosus
     Dosage: LOW-DOSE GLUCOCORTICOIDS WAS STARTED INITIALLY
     Route: 065
     Dates: start: 2000

REACTIONS (6)
  - Retinal vasculitis [Unknown]
  - Progressive multifocal leukoencephalopathy [Fatal]
  - JC virus infection [Unknown]
  - Mouth ulceration [Unknown]
  - Nausea [Unknown]
  - Alopecia [Unknown]

NARRATIVE: CASE EVENT DATE: 20030101
